FAERS Safety Report 9531993 (Version 1)
Quarter: 2013Q3

REPORT INFORMATION
  Report Type: Spontaneous
  Country: US (occurrence: None)
  Receive Date: 20130917
  Receipt Date: 20130917
  Transmission Date: 20140515
  Serious: Yes (Hospitalization)
  Sender: FDA-Public Use
  Company Number: None

PATIENT
  Sex: Female
  Weight: 60.33 kg

DRUGS (2)
  1. MYFORTIC [Suspect]
     Indication: RENAL TRANSPLANT
     Route: 048
     Dates: start: 20130826
  2. TACROLIMUS [Suspect]
     Route: 048

REACTIONS (3)
  - Dehydration [None]
  - Haemoglobin decreased [None]
  - Blood pressure decreased [None]
